FAERS Safety Report 21875072 (Version 3)
Quarter: 2023Q1

REPORT INFORMATION
  Report Type: Spontaneous
  Country: US (occurrence: US)
  Receive Date: 20230117
  Receipt Date: 20230313
  Transmission Date: 20230418
  Serious: Yes (Other)
  Sender: FDA-Public Use
  Company Number: US-JNJFOC-20230118385

PATIENT
  Age: 52 Year
  Sex: Male

DRUGS (2)
  1. STELARA [Suspect]
     Active Substance: USTEKINUMAB
     Indication: Colitis ulcerative
     Route: 040
     Dates: start: 20221115
  2. STELARA [Suspect]
     Active Substance: USTEKINUMAB
     Route: 058
     Dates: start: 20230109

REACTIONS (7)
  - Haematochezia [Unknown]
  - Diarrhoea [Unknown]
  - Nasal congestion [Unknown]
  - Headache [Unknown]
  - Pruritus [Unknown]
  - Nausea [Unknown]
  - Fatigue [Unknown]

NARRATIVE: CASE EVENT DATE: 20230102
